FAERS Safety Report 25711988 (Version 1)
Quarter: 2025Q3

REPORT INFORMATION
  Report Type: Spontaneous
  Country: KR (occurrence: KR)
  Receive Date: 20250821
  Receipt Date: 20250821
  Transmission Date: 20251021
  Serious: Yes (Death)
  Sender: PFIZER
  Company Number: KR-PFIZER INC-202500166528

PATIENT
  Age: 86 Year
  Sex: Male

DRUGS (1)
  1. VYNDAMAX [Suspect]
     Active Substance: TAFAMIDIS
     Dates: start: 20250603, end: 20250717

REACTIONS (2)
  - Atrial fibrillation [Fatal]
  - Haematuria [Fatal]

NARRATIVE: CASE EVENT DATE: 20250711
